FAERS Safety Report 4948780-0 (Version None)
Quarter: 2006Q1

REPORT INFORMATION
  Report Type: 
  Country: None (occurrence: None)
  Receive Date: 20060315
  Receipt Date: 20060302
  Transmission Date: 20060701
  Serious: Yes (Death, Hospitalization, Other)
  Sender: FDA-Public Use
  Company Number: USA-2006-0023497

PATIENT
  Age: 61 Year
  Sex: Male

DRUGS (8)
  1. OXYCONTIN [Suspect]
     Indication: PAIN
     Dosage: 80 MG, BID, ORAL
     Route: 048
  2. ELAVIL [Concomitant]
  3. PREVACID [Concomitant]
  4. PREDNISONE TAB [Concomitant]
  5. LOPRESSOR [Concomitant]
  6. LIPITOR [Concomitant]
  7. PLAVIX [Concomitant]
  8. VALIUM [Concomitant]

REACTIONS (8)
  - COMA [None]
  - DRUG WITHDRAWAL SYNDROME [None]
  - FEELING ABNORMAL [None]
  - IMMUNOSUPPRESSION [None]
  - MEMORY IMPAIRMENT [None]
  - MULTI-ORGAN FAILURE [None]
  - PNEUMONIA [None]
  - SEPSIS [None]
